FAERS Safety Report 18647789 (Version 2)
Quarter: 2021Q1

REPORT INFORMATION
  Report Type: Spontaneous
  Country: GB (occurrence: GB)
  Receive Date: 20201222
  Receipt Date: 20210102
  Transmission Date: 20210419
  Serious: No
  Sender: FDA-Public Use
  Company Number: GB-LUPIN PHARMACEUTICALS INC.-2020-10700

PATIENT
  Age: 44 Year
  Sex: Female

DRUGS (3)
  1. GABAPENTIN. [Suspect]
     Active Substance: GABAPENTIN
     Indication: HEADACHE
     Dosage: UNK
     Route: 065
  2. LANSOPRAZOLE. [Suspect]
     Active Substance: LANSOPRAZOLE
     Indication: DRUG THERAPY
     Dosage: UNK
     Route: 065
  3. ACETAZOLAMIDE. [Concomitant]
     Active Substance: ACETAZOLAMIDE
     Indication: HEADACHE
     Dosage: UNK
     Route: 065

REACTIONS (2)
  - Somnolence [Unknown]
  - Drug ineffective [Unknown]
